FAERS Safety Report 15043643 (Version 9)
Quarter: 2020Q3

REPORT INFORMATION
  Report Type: Spontaneous
  Country: GB (occurrence: GB)
  Receive Date: 20180621
  Receipt Date: 20200819
  Transmission Date: 20201102
  Serious: Yes (Hospitalization, Other)
  Sender: FDA-Public Use
  Company Number: GB-MYLANLABS-2016M1039627

PATIENT
  Age: 60 Year
  Sex: Male

DRUGS (2)
  1. CLOZARIL [Suspect]
     Active Substance: CLOZAPINE
     Indication: SCHIZOPHRENIA
     Dosage: UNK
     Route: 048
     Dates: start: 20120214
  2. CLOZARIL [Suspect]
     Active Substance: CLOZAPINE
     Dosage: UNK
     Route: 048
     Dates: start: 20190304

REACTIONS (12)
  - C-reactive protein increased [Unknown]
  - Haematocrit decreased [Unknown]
  - Differential white blood cell count abnormal [Recovering/Resolving]
  - Full blood count abnormal [Unknown]
  - Haemoglobin decreased [Unknown]
  - Neutrophil count increased [Unknown]
  - Glomerular filtration rate decreased [Unknown]
  - Protein total decreased [Unknown]
  - Leukocytosis [Recovering/Resolving]
  - Spinal cord disorder [Unknown]
  - Monocyte count increased [Unknown]
  - Red blood cell count decreased [Unknown]

NARRATIVE: CASE EVENT DATE: 20130211
